FAERS Safety Report 19328810 (Version 3)
Quarter: 2021Q2

REPORT INFORMATION
  Report Type: Spontaneous
  Country: CN (occurrence: CN)
  Receive Date: 20210528
  Receipt Date: 20210615
  Transmission Date: 20210717
  Serious: Yes (Hospitalization)
  Sender: FDA-Public Use
  Company Number: CN-ASTRAZENECA-2021A459085

PATIENT
  Age: 50 Year
  Sex: Male

DRUGS (2)
  1. NEXIUM [Suspect]
     Active Substance: ESOMEPRAZOLE MAGNESIUM
     Indication: OESOPHAGEAL ULCER
     Dosage: 20MG IN THE MORNING AND 20MG IN THE EVENING FOR 8 WEEKS
     Route: 048
     Dates: start: 20210407
  2. REHABILITATION LIQUID [Concomitant]
     Indication: OESOPHAGEAL ULCER
     Route: 048

REACTIONS (3)
  - Extrasystoles [Unknown]
  - Blood glucose increased [Not Recovered/Not Resolved]
  - Blood uric acid increased [Not Recovered/Not Resolved]

NARRATIVE: CASE EVENT DATE: 20210507
